FAERS Safety Report 10525408 (Version 1)
Quarter: 2014Q4

REPORT INFORMATION
  Report Type: Spontaneous
  Country: AU (occurrence: None)
  Receive Date: 20141015
  Receipt Date: 20141015
  Transmission Date: 20150528
  Serious: Yes (Hospitalization, Other)
  Sender: FDA-Public Use
  Company Number: 2014-20494

PATIENT
  Age: 81 Year
  Sex: Male

DRUGS (1)
  1. EYLEA [Suspect]
     Active Substance: AFLIBERCEPT
     Indication: AGE-RELATED MACULAR DEGENERATION
     Dosage: LEFT EYE, EVERY 4-6 WEEKS
     Route: 031
     Dates: start: 201301

REACTIONS (2)
  - Inappropriate schedule of drug administration [None]
  - Gastrointestinal carcinoma [None]

NARRATIVE: CASE EVENT DATE: 2013
